FAERS Safety Report 25482716 (Version 1)
Quarter: 2025Q2

REPORT INFORMATION
  Report Type: Spontaneous
  Country: GR (occurrence: GR)
  Receive Date: 20250626
  Receipt Date: 20250626
  Transmission Date: 20250717
  Serious: Yes (Other)
  Sender: SANOFI AVENTIS
  Company Number: GR-SA-2025SA178514

PATIENT
  Sex: Female

DRUGS (2)
  1. ZOLPIDEM TARTRATE [Suspect]
     Active Substance: ZOLPIDEM TARTRATE
  2. ALCOHOL [Suspect]
     Active Substance: ALCOHOL

REACTIONS (2)
  - Loss of consciousness [Unknown]
  - Intentional product misuse [Unknown]
